FAERS Safety Report 9526011 (Version 1)
Quarter: 2013Q1

REPORT INFORMATION
  Report Type: Spontaneous
  Country: US (occurrence: None)
  Receive Date: 20130314
  Receipt Date: 20130314
  Transmission Date: 20140127
  Serious: No
  Sender: FDA-Public Use
  Company Number: 1302USA000216

PATIENT
  Age: 57 Year
  Sex: Male
  Weight: 82.1 kg

DRUGS (2)
  1. VICTRELLIS [Suspect]
     Route: 048
     Dates: start: 201211
  2. RIBAVIRIN (RIBAVIRIN) CAPSULE [Suspect]

REACTIONS (2)
  - Depression [None]
  - Weight decreased [None]
